FAERS Safety Report 13309157 (Version 2)
Quarter: 2017Q1

REPORT INFORMATION
  Report Type: Spontaneous
  Country: US (occurrence: US)
  Receive Date: 20170308
  Receipt Date: 20170324
  Transmission Date: 20170428
  Serious: Yes (Hospitalization, Other)
  Sender: FDA-Public Use
  Company Number: US-ELI_LILLY_AND_COMPANY-US201608003006

PATIENT
  Sex: Female

DRUGS (5)
  1. CYMBALTA [Suspect]
     Active Substance: DULOXETINE HYDROCHLORIDE
     Indication: FIBROMYALGIA
     Dosage: 90 MG, QD
     Route: 048
  2. CYMBALTA [Suspect]
     Active Substance: DULOXETINE HYDROCHLORIDE
     Indication: DEPRESSION
     Dosage: 30 MG, BID
     Route: 048
  3. LYRICA [Suspect]
     Active Substance: PREGABALIN
     Indication: FIBROMYALGIA
     Dosage: UNK, UNKNOWN
     Route: 065
  4. CYMBALTA [Suspect]
     Active Substance: DULOXETINE HYDROCHLORIDE
     Dosage: 120 MG, QD
     Route: 048
  5. CYMBALTA [Suspect]
     Active Substance: DULOXETINE HYDROCHLORIDE
     Dosage: 30 MG, QD
     Route: 048

REACTIONS (24)
  - Sensory disturbance [Unknown]
  - Dysphoria [Unknown]
  - Lethargy [Unknown]
  - Tremor [Recovering/Resolving]
  - Tremor [Unknown]
  - Affect lability [Unknown]
  - Drug withdrawal syndrome [Unknown]
  - Hyperhidrosis [Recovering/Resolving]
  - Dizziness [Recovering/Resolving]
  - Confusional state [Unknown]
  - Suicidal ideation [Unknown]
  - Diarrhoea [Unknown]
  - Anxiety [Unknown]
  - Insomnia [Unknown]
  - Hot flush [Recovering/Resolving]
  - Seizure [Unknown]
  - Agitation [Unknown]
  - Paraesthesia [Unknown]
  - Fatigue [Unknown]
  - Dizziness [Unknown]
  - Headache [Unknown]
  - Fatigue [Recovering/Resolving]
  - Hyperhidrosis [Unknown]
  - Irritability [Unknown]
